FAERS Safety Report 5726563-1 (Version None)
Quarter: 2008Q2

REPORT INFORMATION
  Report Type: 
  Country: None (occurrence: None)
  Receive Date: 20080502
  Receipt Date: 20080422
  Transmission Date: 20081010
  Serious: Yes (Hospitalization, Other)
  Sender: FDA-Public Use
  Company Number: JP-ROCHE-553027

PATIENT
  Sex: Female
  Weight: 36 kg

DRUGS (1)
  1. TAMIFLU [Suspect]
     Dosage: FORM: DRY SYRUP.
     Route: 048
     Dates: start: 20070219, end: 20070219

REACTIONS (2)
  - ABNORMAL BEHAVIOUR [None]
  - CONVULSION [None]
